FAERS Safety Report 5968555-3 (Version None)
Quarter: 2008Q4

REPORT INFORMATION
  Report Type: 
  Country: None (occurrence: None)
  Receive Date: 20081126
  Receipt Date: 20081120
  Transmission Date: 20090506
  Serious: Yes (Hospitalization)
  Sender: FDA-Public Use
  Company Number: CH-TEVA-181211ISR

PATIENT
  Sex: Male

DRUGS (11)
  1. FLUOROURACIL [Suspect]
     Indication: COLORECTAL CANCER
     Route: 042
     Dates: start: 20081013
  2. FLUOROURACIL [Suspect]
     Route: 042
     Dates: start: 20080623, end: 20080922
  3. FOLINIC ACID [Suspect]
     Indication: COLORECTAL CANCER
     Route: 042
     Dates: start: 20081013
  4. FOLINIC ACID [Suspect]
     Route: 042
     Dates: start: 20080623, end: 20080922
  5. CETUXIMAB [Suspect]
     Indication: COLORECTAL CANCER
     Route: 042
     Dates: start: 20080623, end: 20080922
  6. CETUXIMAB [Suspect]
     Route: 042
     Dates: start: 20081013
  7. BEVACIZUMAB [Suspect]
     Indication: COLORECTAL CANCER
     Route: 042
     Dates: start: 20080623
  8. BEVACIZUMAB [Suspect]
     Route: 042
     Dates: start: 20081013
  9. IRINOTECAN HYDROCHLORIDE [Suspect]
     Indication: COLORECTAL CANCER
     Route: 042
     Dates: start: 20080630, end: 20080915
  10. IRINOTECAN HYDROCHLORIDE [Suspect]
     Route: 042
     Dates: start: 20081013
  11. OXALIPLATIN [Suspect]
     Indication: COLORECTAL CANCER
     Route: 042
     Dates: start: 20080623

REACTIONS (2)
  - C-REACTIVE PROTEIN INCREASED [None]
  - DIARRHOEA [None]
